FAERS Safety Report 7165632-9 (Version None)
Quarter: 2010Q4

REPORT INFORMATION
  Report Type: 
  Country: None (occurrence: None)
  Receive Date: 20101215
  Receipt Date: 20100103
  Transmission Date: 20110411
  Serious: No
  Sender: FDA-Public Use
  Company Number: US-AMGEN-TCS383502

PATIENT

DRUGS (2)
  1. ENBREL [Suspect]
     Indication: RHEUMATOID ARTHRITIS
     Dosage: 50 MG, QWK
     Route: 058
     Dates: start: 20060911
  2. HYDROXYCHLOROQUINE [Concomitant]
     Dosage: 200 MG, BID
     Dates: start: 20060925

REACTIONS (1)
  - EAR INFECTION [None]
